FAERS Safety Report 20189604 (Version 1)
Quarter: 2021Q4

REPORT INFORMATION
  Report Type: Spontaneous
  Country: CN (occurrence: None)
  Receive Date: 20211215
  Receipt Date: 20211215
  Transmission Date: 20220303
  Serious: Yes (Other)
  Sender: FDA-Public Use
  Company Number: 2021A809779

PATIENT
  Age: 14 Year
  Sex: Female

DRUGS (8)
  1. QUETIAPINE [Suspect]
     Active Substance: QUETIAPINE
     Indication: Sleep disorder
     Dosage: 17 TABLETS OF 200 MG
     Route: 048
     Dates: start: 202007
  2. QUETIAPINE [Suspect]
     Active Substance: QUETIAPINE
     Indication: Bipolar disorder
     Dosage: 17 TABLETS OF 200 MG
     Route: 048
     Dates: start: 202007
  3. QUETIAPINE [Suspect]
     Active Substance: QUETIAPINE
     Indication: Sleep disorder
     Dosage: INCREASED THE DOSE HERSELF
     Route: 048
  4. QUETIAPINE [Suspect]
     Active Substance: QUETIAPINE
     Indication: Bipolar disorder
     Dosage: INCREASED THE DOSE HERSELF
     Route: 048
  5. QUETIAPINE [Suspect]
     Active Substance: QUETIAPINE
     Indication: Sleep disorder
     Route: 048
  6. QUETIAPINE [Suspect]
     Active Substance: QUETIAPINE
     Indication: Bipolar disorder
     Route: 048
  7. FLUOXETINE [Concomitant]
     Active Substance: FLUOXETINE HYDROCHLORIDE
     Indication: Bulimia nervosa
     Dosage: 60.0MG UNKNOWN
     Route: 065
     Dates: start: 201910
  8. VENLAFAXINE [Concomitant]
     Active Substance: VENLAFAXINE HYDROCHLORIDE
     Indication: Bulimia nervosa
     Dosage: 75.0MG UNKNOWN
     Route: 065
     Dates: start: 201910

REACTIONS (6)
  - Overdose [Unknown]
  - Suicide attempt [Unknown]
  - Confusional state [Unknown]
  - Memory impairment [Unknown]
  - Enuresis [Unknown]
  - Treatment noncompliance [Unknown]
